FAERS Safety Report 10147089 (Version 2)
Quarter: 2014Q2

REPORT INFORMATION
  Report Type: Spontaneous
  Country: US (occurrence: US)
  Receive Date: 20140501
  Receipt Date: 20140516
  Transmission Date: 20141212
  Serious: No
  Sender: FDA-Public Use
  Company Number: US-PFIZER INC-2014119856

PATIENT
  Sex: Male

DRUGS (2)
  1. LYRICA [Suspect]
     Dosage: 75 MG, 2X/DAY
     Dates: end: 2011
  2. LYRICA [Suspect]
     Dosage: UNK
     Dates: start: 2013

REACTIONS (1)
  - Peripheral swelling [Unknown]
